FAERS Safety Report 19265534 (Version 1)
Quarter: 2021Q2

REPORT INFORMATION
  Report Type: Spontaneous
  Country: US (occurrence: US)
  Receive Date: 20210517
  Receipt Date: 20210517
  Transmission Date: 20210717
  Serious: Yes (Other)
  Sender: FDA-Public Use
  Company Number: US-SA-2021SA159826

PATIENT
  Age: 63 Year
  Sex: Male

DRUGS (1)
  1. DUPILUMAB [Suspect]
     Active Substance: DUPILUMAB
     Indication: ASTHMA
     Dosage: UNK

REACTIONS (8)
  - Pyrexia [Recovering/Resolving]
  - Leukocytosis [Recovering/Resolving]
  - Fatigue [Recovering/Resolving]
  - Myalgia [Recovering/Resolving]
  - Eosinophilic myocarditis [Recovering/Resolving]
  - Skin plaque [Recovering/Resolving]
  - Eosinophilia [Recovering/Resolving]
  - Eosinophilic granulomatosis with polyangiitis [Recovering/Resolving]
